FAERS Safety Report 15417024 (Version 1)
Quarter: 2018Q3

REPORT INFORMATION
  Report Type: Spontaneous
  Country: US (occurrence: US)
  Receive Date: 20180924
  Receipt Date: 20180924
  Transmission Date: 20181010
  Serious: No
  Sender: FDA-Public Use
  Company Number: US-BAUSCH-BL-2018-025132

PATIENT
  Age: 57 Year
  Sex: Female

DRUGS (1)
  1. CARAC [Suspect]
     Active Substance: FLUOROURACIL
     Indication: ACTINIC KERATOSIS
     Dosage: APPLYING A THIN LAYER ALL OVER THE FACE DAILY
     Route: 061
     Dates: start: 2016, end: 2016

REACTIONS (4)
  - Skin tightness [Unknown]
  - Scar [Not Recovered/Not Resolved]
  - Application site irritation [Unknown]
  - Application site pain [Unknown]

NARRATIVE: CASE EVENT DATE: 2016
